FAERS Safety Report 8943390 (Version 1)
Quarter: 2012Q4

REPORT INFORMATION
  Report Type: 
  Country: AT (occurrence: AT)
  Receive Date: 20121203
  Receipt Date: 20121203
  Transmission Date: 20130627
  Serious: Yes (Other)
  Sender: FDA-Public Use
  Company Number: AT-NOVOPROD-365266

PATIENT
  Sex: Male
  Weight: 3.4 kg

DRUGS (5)
  1. INSULATARD NPH HUMAN [Suspect]
     Indication: GESTATIONAL DIABETES
     Dosage: 8-0-0-16
     Route: 064
     Dates: start: 20111219, end: 20111227
  2. INSULATARD NPH HUMAN [Suspect]
     Dosage: UNK
     Route: 064
  3. NOVORAPID [Suspect]
     Indication: GESTATIONAL DIABETES
     Dosage: UNK
     Route: 064
     Dates: start: 20111223
  4. DIPROFORTE [Concomitant]
     Indication: INJECTION SITE REACTION
     Dosage: UNK
     Dates: start: 20120105
  5. HOMEOPATHIC PREPARATION [Concomitant]
     Indication: INJECTION SITE REACTION
     Dosage: UNK
     Dates: start: 2012

REACTIONS (2)
  - Cardiac septal defect [Recovered/Resolved]
  - Foetal exposure during pregnancy [Recovered/Resolved]
